FAERS Safety Report 5159421-4 (Version None)
Quarter: 2006Q4

REPORT INFORMATION
  Report Type: 
  Country: None (occurrence: None)
  Receive Date: 20061122
  Receipt Date: 20061122
  Transmission Date: 20070319
  Serious: Yes (Hospitalization)
  Sender: FDA-Public Use
  Company Number: None

PATIENT
  Age: 80 Year
  Sex: Male
  Weight: 83 kg

DRUGS (8)
  1. LITHIUM CARBONATE [Suspect]
     Indication: DEPRESSIVE SYMPTOM
     Dosage: 300MG TWICE DAILY PO
     Route: 048
     Dates: start: 20060712, end: 20060725
  2. MIRTAZAPINE [Concomitant]
  3. BUPROPION XL [Concomitant]
  4. LITHIUM CARBONATE [Concomitant]
  5. HALOPERIDOL [Concomitant]
  6. GABAPENTIN [Concomitant]
  7. LISINOPRIL [Concomitant]
  8. METOPROLOL SUCCINATE [Concomitant]

REACTIONS (3)
  - COORDINATION ABNORMAL [None]
  - RENAL FAILURE ACUTE [None]
  - TREMOR [None]
